FAERS Safety Report 7626922-6 (Version None)
Quarter: 2011Q3

REPORT INFORMATION
  Report Type: 
  Country: None (occurrence: None)
  Receive Date: 20110714
  Receipt Date: 20110707
  Transmission Date: 20111222
  Serious: Yes (Hospitalization)
  Sender: FDA-Public Use
  Company Number: ACO_25576_2011

PATIENT
  Age: 50 Year
  Sex: Female

DRUGS (4)
  1. ANALGESICS AND ANESTHETICS () [Suspect]
     Indication: PRODUCT USED FOR UNKNOWN INDICATION
  2. AMPYRA [Suspect]
     Indication: GAIT DISTURBANCE
  3. ANTIDEPRESSANTS () [Suspect]
     Indication: PRODUCT USED FOR UNKNOWN INDICATION
  4. TYSABRI [Concomitant]

REACTIONS (1)
  - CONVULSION [None]
